FAERS Safety Report 8081590-7 (Version None)
Quarter: 2012Q1

REPORT INFORMATION
  Report Type: 
  Country: None (occurrence: None)
  Receive Date: 20120130
  Receipt Date: 20120127
  Transmission Date: 20120608
  Serious: Yes (Hospitalization)
  Sender: FDA-Public Use
  Company Number: IT-BAYER-2012-009024

PATIENT
  Age: 76 Year
  Sex: Male

DRUGS (5)
  1. ASPIRIN [Suspect]
     Indication: CORONARY ARTERY DISEASE
     Dosage: 100 MG, QD
     Route: 048
     Dates: start: 20090101, end: 20111224
  2. LASIX [Concomitant]
  3. ATORVASTATIN CALCIUM [Concomitant]
     Dosage: UNK
  4. ALIFLUS [Concomitant]
  5. SPIRIVA [Concomitant]

REACTIONS (2)
  - THROMBOCYTOPENIA [None]
  - SKIN HAEMORRHAGE [None]
